FAERS Safety Report 5129822-9 (Version None)
Quarter: 2006Q4

REPORT INFORMATION
  Report Type: 
  Country: None (occurrence: None)
  Receive Date: 20061012
  Receipt Date: 20061004
  Transmission Date: 20070319
  Serious: Yes (Other)
  Sender: FDA-Public Use
  Company Number: GXKR2006GB06207

PATIENT
  Age: 60 Year
  Sex: Male

DRUGS (4)
  1. INDOMETHACIN [Suspect]
     Indication: GOUT
     Dosage: 50 MG, TID
     Dates: start: 20060801
  2. ASPIRIN [Concomitant]
  3. LISINOPRIL [Concomitant]
  4. SIMVASTATIN [Concomitant]

REACTIONS (2)
  - POLLAKIURIA [None]
  - URINE COLOUR ABNORMAL [None]
